FAERS Safety Report 24944914 (Version 1)
Quarter: 2025Q1

REPORT INFORMATION
  Report Type: Spontaneous
  Country: US (occurrence: US)
  Receive Date: 20250208
  Receipt Date: 20250208
  Transmission Date: 20250409
  Serious: No
  Sender: Haleon PLC
  Company Number: US-MMM-7RVQDBF8

PATIENT
  Age: 54 Year
  Sex: Male

DRUGS (1)
  1. FLONASE [Suspect]
     Active Substance: FLUTICASONE PROPIONATE
     Indication: Sinus disorder
     Dates: start: 20241205, end: 20250205

REACTIONS (3)
  - Diarrhoea [Unknown]
  - Food allergy [Not Recovered/Not Resolved]
  - Arthropod bite [Unknown]

NARRATIVE: CASE EVENT DATE: 20241205
